FAERS Safety Report 8802752 (Version 1)
Quarter: 2012Q4

REPORT INFORMATION
  Report Type: 
  Country: FR (occurrence: FR)
  Receive Date: 20120921
  Receipt Date: 20120921
  Transmission Date: 20130627
  Serious: Yes (Life-Threatening, Hospitalization, Other)
  Sender: FDA-Public Use
  Company Number: FR-009507513-1011USA00651

PATIENT
  Age: 45 Year
  Sex: Female

DRUGS (12)
  1. ISENTRESS [Suspect]
     Indication: HIV INFECTION
     Dosage: 400 mg, qd
     Route: 048
     Dates: start: 20100625, end: 20100625
  2. ISENTRESS [Suspect]
     Dosage: 400 mg, qd
     Route: 048
     Dates: start: 20100817, end: 201008
  3. VIDEX [Suspect]
     Indication: HIV INFECTION
     Dosage: 1 DF, qd
     Route: 048
     Dates: start: 20100625
  4. REYATAZ [Suspect]
     Indication: HIV INFECTION
     Route: 048
     Dates: start: 20100819
  5. SUSTIVA [Suspect]
     Route: 048
  6. EPIVIR [Suspect]
     Indication: HIV INFECTION
     Dosage: 1 DF, qd
     Route: 048
     Dates: start: 20100625, end: 20100625
  7. VIREAD [Suspect]
     Dates: start: 20100528, end: 20100607
  8. VIREAD [Suspect]
     Dates: start: 20100811, end: 20100811
  9. PREZISTA [Suspect]
     Dates: start: 20100528, end: 20100607
  10. NORVIR [Suspect]
     Indication: HIV INFECTION
     Dates: start: 20100528, end: 20100607
  11. PIASCLEDINE [Concomitant]
  12. NEVIRAPINE [Suspect]

REACTIONS (8)
  - Acute generalised exanthematous pustulosis [Recovering/Resolving]
  - Drug resistance [Unknown]
  - Pancytopenia [Unknown]
  - Asthenia [Unknown]
  - Weight decreased [Unknown]
  - Castleman^s disease [Unknown]
  - Generalised erythema [Recovered/Resolved]
  - Anaphylactic shock [Recovered/Resolved]
